FAERS Safety Report 23782470 (Version 1)
Quarter: 2024Q2

REPORT INFORMATION
  Report Type: Spontaneous
  Country: US (occurrence: None)
  Receive Date: 20240423
  Receipt Date: 20240423
  Transmission Date: 20240715
  Serious: Yes (Other)
  Sender: FDA-Public Use
  Company Number: None

PATIENT
  Age: 60 Year
  Sex: Male
  Weight: 57.61 kg

DRUGS (2)
  1. VYEPTI [Suspect]
     Active Substance: EPTINEZUMAB-JJMR
     Indication: Migraine
     Dosage: OTHER FREQUENCY : 3 MONTHLY;?
     Route: 041
     Dates: start: 20230401, end: 20240401
  2. Prednisolone drops [Concomitant]

REACTIONS (1)
  - Corneal graft rejection [None]

NARRATIVE: CASE EVENT DATE: 20240401
